FAERS Safety Report 16069909 (Version 2)
Quarter: 2019Q2

REPORT INFORMATION
  Report Type: Spontaneous
  Country: US (occurrence: US)
  Receive Date: 20190314
  Receipt Date: 20190427
  Transmission Date: 20190711
  Serious: Yes (Other)
  Sender: FDA-Public Use
  Company Number: US-JNJFOC-20190237702

PATIENT
  Age: 45 Year
  Sex: Female
  Weight: 72.58 kg

DRUGS (2)
  1. ORTHO-NOVUM 777 [Suspect]
     Active Substance: ETHINYL ESTRADIOL\NORETHINDRONE
     Indication: CYST
     Dosage: 30 YEARS AGO
     Route: 048
     Dates: end: 20190301
  2. ORTHO-NOVUM 777 [Suspect]
     Active Substance: ETHINYL ESTRADIOL\NORETHINDRONE
     Indication: CONTRACEPTION
     Dosage: 30 YEARS AGO
     Route: 048
     Dates: end: 20190301

REACTIONS (2)
  - Product dose omission [Unknown]
  - Haemorrhage [Recovered/Resolved]

NARRATIVE: CASE EVENT DATE: 201903
